FAERS Safety Report 6020188-9 (Version None)
Quarter: 2008Q4

REPORT INFORMATION
  Report Type: 
  Country: None (occurrence: None)
  Receive Date: 20081226
  Receipt Date: 20081215
  Transmission Date: 20090506
  Serious: Yes (Other)
  Sender: FDA-Public Use
  Company Number: US-ROCHE-603068

PATIENT
  Age: 49 Year
  Sex: Male

DRUGS (8)
  1. FUZEON [Suspect]
     Indication: DRUG USE FOR UNKNOWN INDICATION
     Route: 065
  2. TRUVADA [Concomitant]
  3. FLUCONAZOLE [Concomitant]
  4. ACYCLOVIR [Concomitant]
  5. AZITHROMYCIN [Concomitant]
     Dosage: DRUG REPORTED AS: ZITHROMYCIN
  6. BACTRIM DS [Concomitant]
     Dosage: DOSE REPORTED AS 800 OD
  7. TRICOR [Concomitant]
  8. ETRAVIRINE [Concomitant]
     Dosage: DRUG REPORTED AS: INTELENCE

REACTIONS (1)
  - DISEASE PROGRESSION [None]
